FAERS Safety Report 20662288 (Version 1)
Quarter: 2022Q2

REPORT INFORMATION
  Report Type: Other
  Country: IN (occurrence: None)
  Receive Date: 20220401
  Receipt Date: 20220401
  Transmission Date: 20220720
  Serious: Yes (Death, Other)
  Sender: FDA-Public Use
  Company Number: IN-ROCHE-2825192

PATIENT
  Age: 55 Year
  Sex: Female

DRUGS (5)
  1. KADCYLA [Suspect]
     Active Substance: ADO-TRASTUZUMAB EMTANSINE
     Indication: Breast cancer metastatic
     Route: 042
     Dates: start: 20200611
  2. PERJETA [Suspect]
     Active Substance: PERTUZUMAB
     Indication: Breast cancer metastatic
     Route: 042
     Dates: start: 20181103
  3. DOCETAXEL [Concomitant]
     Active Substance: DOCETAXEL
  4. LETROZOLE [Concomitant]
     Active Substance: LETROZOLE
     Dates: start: 201903
  5. TRASTUZUMAB [Concomitant]
     Active Substance: TRASTUZUMAB
     Route: 065

REACTIONS (10)
  - Neutropenia [Unknown]
  - Bone disorder [Unknown]
  - Ejection fraction decreased [Unknown]
  - Back pain [Unknown]
  - Spinal cord compression [Unknown]
  - Bone lesion [Unknown]
  - Thyroid neoplasm [Unknown]
  - Vertebral lesion [Unknown]
  - Retroperitoneal lymphadenopathy [Unknown]
  - Death [Fatal]

NARRATIVE: CASE EVENT DATE: 20211026
